FAERS Safety Report 7554869-2 (Version None)
Quarter: 2011Q2

REPORT INFORMATION
  Report Type: 
  Country: None (occurrence: None)
  Receive Date: 20110610
  Receipt Date: 20110603
  Transmission Date: 20111010
  Serious: Yes (Life-Threatening)
  Sender: FDA-Public Use
  Company Number: 2010TJ0151FU1

PATIENT
  Age: 70 Year
  Sex: Female

DRUGS (5)
  1. METHOTREXATE [Concomitant]
  2. LEFLUNOMIDE [Concomitant]
  3. ALLOPURINOL [Concomitant]
  4. TWINJECT 0.15 [Suspect]
     Indication: HYPERSENSITIVITY
     Dosage: 0.3 MG,
  5. CITALOPRAM HYDROBROMIDE [Concomitant]

REACTIONS (3)
  - PRODUCT QUALITY ISSUE [None]
  - DEVICE MALFUNCTION [None]
  - CONTUSION [None]
